FAERS Safety Report 13614596 (Version 2)
Quarter: 2017Q2

REPORT INFORMATION
  Report Type: Spontaneous
  Country: IT (occurrence: IT)
  Receive Date: 20170606
  Receipt Date: 20170613
  Transmission Date: 20170830
  Serious: Yes (Hospitalization)
  Sender: FDA-Public Use
  Company Number: IT-AUROBINDO-AUR-APL-2017-34800

PATIENT
  Age: 3 Year
  Sex: Male

DRUGS (3)
  1. ASPIRINA [Suspect]
     Active Substance: ASPIRIN
     Indication: PRODUCT USED FOR UNKNOWN INDICATION
     Dosage: 100 MG, TOTAL
     Route: 048
     Dates: start: 20160701, end: 20160701
  2. SIMVASTATIN TABLETS 40 MG [Suspect]
     Active Substance: SIMVASTATIN
     Indication: PRODUCT USED FOR UNKNOWN INDICATION
     Dosage: 40 MG, TOTAL
     Route: 065
     Dates: start: 20160701, end: 20160701
  3. GLIBENCLAMIDE W/METFORMIN [Suspect]
     Active Substance: GLYBURIDE\METFORMIN
     Indication: PRODUCT USED FOR UNKNOWN INDICATION
     Dosage: 500 MG, DAILY
     Route: 048
     Dates: start: 20160701, end: 20160701

REACTIONS (2)
  - Hypoglycaemia [Recovering/Resolving]
  - Asthenia [Recovering/Resolving]

NARRATIVE: CASE EVENT DATE: 20160701
